FAERS Safety Report 9703594 (Version 2)
Quarter: 2014Q1

REPORT INFORMATION
  Report Type: Spontaneous
  Country: US (occurrence: US)
  Receive Date: 20131122
  Receipt Date: 20140304
  Transmission Date: 20141002
  Serious: No
  Sender: FDA-Public Use
  Company Number: US-PFIZER INC-2013331749

PATIENT
  Sex: Female

DRUGS (7)
  1. ARTHROTEC [Suspect]
     Dosage: UNK
  2. OXYCODONE HYDROCHLORIDE [Suspect]
     Dosage: UNK
  3. ALENDRONATE [Suspect]
     Dosage: UNK
  4. CODEINE [Suspect]
     Dosage: UNK
  5. METHOCARBAMOL [Suspect]
     Dosage: UNK
  6. APAP [Suspect]
     Dosage: UNK
  7. MIACALCIN [Suspect]

REACTIONS (1)
  - Drug hypersensitivity [Unknown]
